FAERS Safety Report 7825945-1 (Version None)
Quarter: 2011Q4

REPORT INFORMATION
  Report Type: 
  Country: None (occurrence: None)
  Receive Date: 20111019
  Receipt Date: 20111014
  Transmission Date: 20120403
  Serious: Yes (Death)
  Sender: FDA-Public Use
  Company Number: GB-ROCHE-1004486

PATIENT
  Sex: Female

DRUGS (14)
  1. LUCENTIS [Suspect]
     Indication: PRODUCT USED FOR UNKNOWN INDICATION
     Route: 050
  2. ASPIRIN [Concomitant]
  3. RAMIPRIL [Concomitant]
  4. LUCENTIS [Suspect]
     Route: 050
     Dates: start: 20110101
  5. BUTRANS [Concomitant]
  6. FERROUS FUMARATE [Concomitant]
  7. SIMVASTATIN [Concomitant]
  8. ZOPICLONE [Concomitant]
  9. LUCENTIS [Suspect]
     Route: 050
     Dates: start: 20100614
  10. LUCENTIS [Suspect]
     Route: 050
     Dates: start: 20100923
  11. BISOPROLOL [Concomitant]
  12. OMEPRAZOLE [Concomitant]
  13. GTN PATCH [Concomitant]
     Dates: start: 20100801
  14. LORAZEPAM [Concomitant]

REACTIONS (3)
  - RHABDOMYOLYSIS [None]
  - LEFT VENTRICULAR FAILURE [None]
  - MYOCARDIAL INFARCTION [None]
